FAERS Safety Report 8822638 (Version 2)
Quarter: 2013Q2

REPORT INFORMATION
  Report Type: Spontaneous
  Country: US (occurrence: US)
  Receive Date: 20121003
  Receipt Date: 20130522
  Transmission Date: 20140414
  Serious: Yes (Other)
  Sender: FDA-Public Use
  Company Number: US-PFIZER INC-2012244076

PATIENT
  Age: 38 Year
  Sex: Female

DRUGS (10)
  1. CHANTIX [Suspect]
     Dosage: 0.5MG-1MG, UNK
     Dates: start: 20071016, end: 20080118
  2. CIPROFLOXACIN [Concomitant]
     Dosage: 500 MG, 2X/DAY, EVERY 12 HOURS
     Route: 048
     Dates: start: 20071220, end: 20080222
  3. PSEUDOEPHEDRINE [Concomitant]
     Dosage: 60 MG, 4X/DAY, EVERY SIX HOURS
     Route: 048
     Dates: start: 20071220, end: 20080222
  4. MUCINEX - D [Concomitant]
     Dosage: 60 MG- 600 MG, EVERY 12 HOURS
     Route: 048
     Dates: start: 20071220, end: 20080222
  5. ATROVENT [Concomitant]
     Dosage: 2X/DAY
  6. MIDRIN [Concomitant]
     Dosage: 325MG / 65 MG / 100MG
  7. PROZAC [Concomitant]
     Dosage: 40 MG, 1X/DAY
     Route: 048
  8. TRAZODONE [Concomitant]
     Dosage: 50 MG, 1X/DAY, AFTER DINNER
  9. NEURONTIN [Concomitant]
     Dosage: 300 MG, 3X/DAY
     Route: 048
  10. TRIAMTERENE HYDROCHLOROTHIAZIDE [Concomitant]
     Indication: OEDEMA
     Dosage: 37.5 MG -25 MG
     Route: 048

REACTIONS (4)
  - Suicidal ideation [Unknown]
  - Depression [Unknown]
  - Abnormal dreams [Unknown]
  - Anxiety [Unknown]
